FAERS Safety Report 5853423-8 (Version None)
Quarter: 2008Q3

REPORT INFORMATION
  Report Type: 
  Country: None (occurrence: None)
  Receive Date: 20080820
  Receipt Date: 20080811
  Transmission Date: 20090109
  Serious: Yes (Other)
  Sender: FDA-Public Use
  Company Number: 19974

PATIENT
  Age: 27 Year
  Sex: Male

DRUGS (1)
  1. METHOTREXATE SODIUM [Suspect]
     Indication: B-LYMPHOCYTE ABNORMALITIES
     Dosage: 3500 MG/M2 PER_ CYCLE IV
     Route: 042

REACTIONS (6)
  - ATAXIA [None]
  - HALLUCINATION, VISUAL [None]
  - MENINGORADICULITIS [None]
  - REVERSIBLE POSTERIOR LEUKOENCEPHALOPATHY SYNDROME [None]
  - SLEEP DISORDER [None]
  - VISUAL IMPAIRMENT [None]
